FAERS Safety Report 16503852 (Version 11)
Quarter: 2020Q1

REPORT INFORMATION
  Report Type: Spontaneous
  Country: US (occurrence: US)
  Receive Date: 20190701
  Receipt Date: 20200103
  Transmission Date: 20200409
  Serious: Yes (Hospitalization, Other)
  Sender: FDA-Public Use
  Company Number: US-PFIZER INC-2019211656

PATIENT
  Age: 61 Year
  Sex: Female
  Weight: 59 kg

DRUGS (4)
  1. FLECTOR [Suspect]
     Active Substance: DICLOFENAC EPOLAMINE
     Indication: PAIN
     Dosage: 1 PATCH, TWICE A DAY
     Route: 061
     Dates: start: 2013, end: 2018
  2. HUMIRA [Concomitant]
     Active Substance: ADALIMUMAB
     Indication: SYSTEMIC LUPUS ERYTHEMATOSUS
     Dosage: UNK
  3. FLECTOR [Suspect]
     Active Substance: DICLOFENAC EPOLAMINE
     Indication: PERIPHERAL SWELLING
     Dosage: 1 PATCH, TWICE A DAY
  4. FLECTOR [Suspect]
     Active Substance: DICLOFENAC EPOLAMINE
     Indication: RHEUMATOID ARTHRITIS
     Dosage: UNK
     Route: 061

REACTIONS (9)
  - Drug dependence [Unknown]
  - Product use in unapproved indication [Unknown]
  - Arthritis [Unknown]
  - Paralysis [Unknown]
  - Product prescribing issue [Unknown]
  - Osteomyelitis [Unknown]
  - Intentional product misuse [Unknown]
  - Off label use [Unknown]
  - Mobility decreased [Unknown]

NARRATIVE: CASE EVENT DATE: 2013
